FAERS Safety Report 7457960-4 (Version None)
Quarter: 2011Q1

REPORT INFORMATION
  Report Type: 
  Country: None (occurrence: None)
  Receive Date: 20110302
  Receipt Date: 20101101
  Transmission Date: 20110831
  Serious: Yes (Death)
  Sender: FDA-Public Use
  Company Number: 163-21880-10090677

PATIENT
  Age: 66 Year
  Sex: Female
  Weight: 63.8665 kg

DRUGS (1)
  1. REVLIMID [Suspect]
     Indication: MULTIPLE MYELOMA
     Dosage: 25 MG, DAILY X 21 DAYS, REST 1 WEEK, PO
     Route: 048
     Dates: start: 20100201, end: 20100601

REACTIONS (2)
  - MULTIPLE MYELOMA [None]
  - NEOPLASM PROGRESSION [None]
